FAERS Safety Report 13372781 (Version 1)
Quarter: 2017Q1

REPORT INFORMATION
  Report Type: Spontaneous
  Country: US (occurrence: US)
  Receive Date: 20170324
  Receipt Date: 20170324
  Transmission Date: 20170429
  Serious: Yes (Other)
  Sender: FDA-Public Use
  Company Number: None

PATIENT
  Age: 76 Year
  Sex: Female
  Weight: 69.75 kg

DRUGS (1)
  1. CHLORHEXIDINE GLUCONATE WIPES [Suspect]
     Active Substance: CHLORHEXIDINE GLUCONATE
     Indication: PREOPERATIVE CARE
     Route: 061
     Dates: start: 20160920, end: 20160920

REACTIONS (5)
  - Pruritus [None]
  - Urticaria [None]
  - Skin odour abnormal [None]
  - Urine odour abnormal [None]
  - Hypersensitivity [None]

NARRATIVE: CASE EVENT DATE: 20160920
